FAERS Safety Report 25099389 (Version 1)
Quarter: 2025Q1

REPORT INFORMATION
  Report Type: Spontaneous
  Country: US (occurrence: None)
  Receive Date: 20250319
  Receipt Date: 20250319
  Transmission Date: 20250408
  Serious: Yes (unspecified)
  Sender: FDA-CTU
  Company Number: None

PATIENT
  Age: 45 Year
  Sex: Female
  Weight: 94.95 kg

DRUGS (1)
  1. GAMMAKED [Suspect]
     Active Substance: HUMAN IMMUNOGLOBULIN G
     Indication: Dermatomyositis
     Dosage: FREQUENCY : WEEKLY;?
     Route: 042
     Dates: start: 20250308, end: 20250315

REACTIONS (4)
  - Rash [None]
  - Urticaria [None]
  - Nausea [None]
  - Vomiting [None]

NARRATIVE: CASE EVENT DATE: 20250308
